FAERS Safety Report 16313314 (Version 1)
Quarter: 2019Q2

REPORT INFORMATION
  Report Type: Spontaneous
  Country: PH (occurrence: PH)
  Receive Date: 20190515
  Receipt Date: 20190515
  Transmission Date: 20190711
  Serious: Yes (Other)
  Sender: FDA-Public Use
  Company Number: PH-ROCHE-2311570

PATIENT
  Sex: Female

DRUGS (1)
  1. HERCEPTIN [Suspect]
     Active Substance: TRASTUZUMAB
     Indication: BREAST CANCER
     Route: 042
     Dates: start: 201808, end: 201904

REACTIONS (14)
  - Muscle spasms [Unknown]
  - Intervertebral disc degeneration [Unknown]
  - Osteoarthritis [Unknown]
  - Aortic arteriosclerosis [Unknown]
  - Arteriosclerosis [Unknown]
  - Lymphadenopathy [Unknown]
  - Enostosis [Unknown]
  - Pleomorphic adenoma [Unknown]
  - Pancreatic steatosis [Unknown]
  - Degenerative bone disease [Unknown]
  - Cerebral atrophy [Unknown]
  - Pulmonary fibrosis [Unknown]
  - Pleural thickening [Unknown]
  - Atelectasis [Unknown]
